FAERS Safety Report 16459040 (Version 1)
Quarter: 2019Q2

REPORT INFORMATION
  Report Type: Spontaneous
  Country: US (occurrence: US)
  Receive Date: 20190620
  Receipt Date: 20190620
  Transmission Date: 20190711
  Serious: No
  Sender: FDA-Public Use
  Company Number: US-THERAPEUTICSMD-2019TMD01192

PATIENT
  Sex: Female

DRUGS (2)
  1. IMVEXXY [Suspect]
     Active Substance: ESTRADIOL
     Indication: VULVOVAGINAL DRYNESS
     Dosage: UNK
     Dates: start: 201810, end: 201905
  2. CRANBERRY. [Concomitant]
     Active Substance: CRANBERRY
     Dosage: UNK

REACTIONS (2)
  - Off label use [Recovered/Resolved]
  - Hypersensitivity [Unknown]

NARRATIVE: CASE EVENT DATE: 201810
